FAERS Safety Report 6498096-9 (Version None)
Quarter: 2009Q4

REPORT INFORMATION
  Report Type: 
  Country: None (occurrence: None)
  Receive Date: 20091215
  Receipt Date: 20091210
  Transmission Date: 20100525
  Serious: No
  Sender: FDA-Public Use
  Company Number: US-B.I. PHARMACEUTICALS,INC./RIDGEFIELD-2008-BP-05382BP

PATIENT
  Sex: Female
  Weight: 58 kg

DRUGS (5)
  1. COMBIVENT [Suspect]
     Indication: CHRONIC OBSTRUCTIVE PULMONARY DISEASE
     Dosage: 8 PUF
     Route: 055
     Dates: start: 20010101
  2. NORVASC [Concomitant]
     Indication: HYPERTENSION
  3. COUMADIN [Concomitant]
     Indication: ATRIAL FIBRILLATION
  4. TENORMIN [Concomitant]
     Indication: HYPERTENSION
  5. ISOSORBIDE [Concomitant]

REACTIONS (7)
  - BURNING SENSATION [None]
  - DIZZINESS [None]
  - DRUG INEFFECTIVE [None]
  - MALAISE [None]
  - NAUSEA [None]
  - VISION BLURRED [None]
  - VISUAL IMPAIRMENT [None]
